FAERS Safety Report 5325923-0 (Version None)
Quarter: 2007Q2

REPORT INFORMATION
  Report Type: 
  Country: None (occurrence: None)
  Receive Date: 20070514
  Receipt Date: 20070514
  Transmission Date: 20071010
  Serious: No
  Sender: FDA-Public Use
  Company Number: None

PATIENT
  Sex: Female
  Weight: 88.905 kg

DRUGS (1)
  1. ARALAST [Suspect]
     Indication: ALPHA-1 ANTI-TRYPSIN DEFICIENCY
     Dosage: 60MG/KG  WEEKLY  IV DRIP
     Route: 041
     Dates: start: 20070503, end: 20070503

REACTIONS (3)
  - DIZZINESS [None]
  - PRURITUS [None]
  - RASH ERYTHEMATOUS [None]
